FAERS Safety Report 20470062 (Version 3)
Quarter: 2022Q2

REPORT INFORMATION
  Report Type: Spontaneous
  Country: US (occurrence: US)
  Receive Date: 20220214
  Receipt Date: 20220601
  Transmission Date: 20220721
  Serious: No
  Sender: FDA-Public Use
  Company Number: US-KYOWAKIRIN-2022BKK001584

PATIENT

DRUGS (14)
  1. CRYSVITA [Suspect]
     Active Substance: BUROSUMAB-TWZA
     Indication: Hereditary hypophosphataemic rickets
     Dosage: 85 MG, EVERY 4 WEEKS
     Route: 058
     Dates: start: 2019, end: 2021
  2. CRYSVITA [Suspect]
     Active Substance: BUROSUMAB-TWZA
     Dosage: 90 MG, EVERY 4 WEEKS
     Route: 058
     Dates: start: 202106
  3. CRYSVITA [Suspect]
     Active Substance: BUROSUMAB-TWZA
     Dosage: RECIVEED CRYSVITA SQ EVERY 4 WEEKS(1X/4 WEEKS)
     Route: 058
  4. RIOMET [METFORMIN HYDROCHLORIDE] [Concomitant]
     Indication: Glucose tolerance impaired
     Dosage: 5 ML, BID
     Route: 048
  5. VITAMIN D3 [Concomitant]
     Active Substance: CHOLECALCIFEROL
     Indication: Vitamin D deficiency
     Dosage: 1 CAAPSULE DAILY (125MCG)
     Route: 065
     Dates: start: 20210920
  6. VITAMIN D3 [Concomitant]
     Active Substance: CHOLECALCIFEROL
     Indication: Hereditary hypophosphataemic rickets
  7. CYMBALTA [Concomitant]
     Active Substance: DULOXETINE HYDROCHLORIDE
     Indication: Product used for unknown indication
     Dosage: 30+60
     Route: 065
  8. TRAZODONE HCL [Concomitant]
     Active Substance: TRAZODONE HYDROCHLORIDE
     Indication: Product used for unknown indication
     Dosage: UNK
     Route: 065
  9. TOPAMAX [Concomitant]
     Active Substance: TOPIRAMATE
     Indication: Product used for unknown indication
     Dosage: UNK
     Route: 065
  10. BUSPIRONE HCL [Concomitant]
     Active Substance: BUSPIRONE HYDROCHLORIDE
     Indication: Product used for unknown indication
     Dosage: 2 DF DAILY
     Route: 048
  11. AMLODIPINE BESYLATE [Concomitant]
     Active Substance: AMLODIPINE BESYLATE
     Indication: Product used for unknown indication
     Dosage: 1 DF EVERY DAY
     Route: 048
     Dates: start: 202112
  12. ATIVAN [Concomitant]
     Active Substance: LORAZEPAM
     Indication: Product used for unknown indication
     Dosage: UNK
     Route: 065
  13. LANTUS [Concomitant]
     Active Substance: INSULIN GLARGINE
     Indication: Blood glucose increased
     Dosage: 20 UNITS
     Route: 065
     Dates: start: 2021
  14. GLIMEPIRIDE [Concomitant]
     Active Substance: GLIMEPIRIDE
     Indication: Blood glucose increased
     Dosage: 2 MG, BID
     Route: 065
     Dates: start: 2021

REACTIONS (3)
  - Adrenal adenoma [Not Recovered/Not Resolved]
  - Metanephrine urine increased [Recovered/Resolved]
  - Contraindicated product administered [Unknown]

NARRATIVE: CASE EVENT DATE: 20210204
